FAERS Safety Report 19093906 (Version 1)
Quarter: 2021Q2

REPORT INFORMATION
  Report Type: Spontaneous
  Country: CA (occurrence: CA)
  Receive Date: 20210405
  Receipt Date: 20210405
  Transmission Date: 20210717
  Serious: Yes (Other)
  Sender: FDA-Public Use
  Company Number: CA-UCBSA-2021014303

PATIENT
  Age: 52 Year
  Sex: Male

DRUGS (8)
  1. VALPROIC ACID. [Suspect]
     Active Substance: VALPROIC ACID
     Indication: POST-TRAUMATIC EPILEPSY
     Dosage: 250 MILLIGRAM, 4X/DAY (QID)
  2. VALPROIC ACID. [Suspect]
     Active Substance: VALPROIC ACID
     Dosage: 500 MILLIGRAM, 3X/DAY (TID)
  3. OXITRIPTAN [Suspect]
     Active Substance: OXITRIPTAN
     Indication: POST-TRAUMATIC EPILEPSY
     Dosage: 200 MILLIGRAM, 3X/DAY (TID)
  4. LEVETIRACETAM. [Suspect]
     Active Substance: LEVETIRACETAM
     Dosage: 500 MILLIGRAM, 2X/DAY (BID)
  5. LEVETIRACETAM. [Suspect]
     Active Substance: LEVETIRACETAM
     Indication: POST-TRAUMATIC EPILEPSY
     Dosage: 250 MILLIGRAM, 2X/DAY (BID)
  6. CLOBAZAM. [Suspect]
     Active Substance: CLOBAZAM
     Indication: POST-TRAUMATIC EPILEPSY
     Dosage: 10 MILLIGRAM, 2X/DAY (BID)
  7. LEVETIRACETAM. [Suspect]
     Active Substance: LEVETIRACETAM
     Dosage: 1500 MILLIGRAM, 2X/DAY (BID)
  8. GRANISETRON [Suspect]
     Active Substance: GRANISETRON
     Indication: DIARRHOEA
     Dosage: 1 MILLIGRAM, 2X/DAY (BID)

REACTIONS (4)
  - Myoclonus [Unknown]
  - Diarrhoea [Unknown]
  - Somnolence [Unknown]
  - Condition aggravated [Unknown]
